FAERS Safety Report 4502431-8 (Version None)
Quarter: 2004Q4

REPORT INFORMATION
  Report Type: 
  Country: None (occurrence: None)
  Receive Date: 20041110
  Receipt Date: 20041029
  Transmission Date: 20050328
  Serious: No
  Sender: FDA-Public Use
  Company Number: 200658

PATIENT
  Age: 56 Year
  Sex: Female

DRUGS (9)
  1. HERCEPTIN [Suspect]
     Indication: BREAST CANCER
     Dosage: 4 MG/KG, SINGLE, INTRAVENOUS; 147 MG, 1/WEEK, INTRAVENOUS
     Route: 042
     Dates: start: 20020101
  2. HERCEPTIN [Suspect]
     Indication: BREAST CANCER
     Dosage: 4 MG/KG, SINGLE, INTRAVENOUS; 147 MG, 1/WEEK, INTRAVENOUS
     Route: 042
     Dates: start: 20020717
  3. DOCETAXEL(DOCETAXEL) [Suspect]
     Indication: BREAST CANCER
     Dosage: 130 MG, Q3W, INTRAVENOUS
     Route: 042
     Dates: start: 20020717
  4. CARBOPLATIN [Suspect]
     Indication: BREAST CANCER
     Dosage: 600 MG, Q3W, INTRAVENOUS
     Route: 042
     Dates: start: 20020717
  5. DEXAMETHASONE [Concomitant]
  6. ONDANSETRON HCL [Concomitant]
  7. FLUCONAZOLE [Concomitant]
  8. METOCLOPRAMIDE [Concomitant]
  9. NYSTATIN [Concomitant]

REACTIONS (3)
  - DEHYDRATION [None]
  - MARKEDLY REDUCED DIETARY INTAKE [None]
  - OLIGODIPSIA [None]
